FAERS Safety Report 4861143-1 (Version None)
Quarter: 2005Q4

REPORT INFORMATION
  Report Type: 
  Country: None (occurrence: None)
  Receive Date: 20051220
  Receipt Date: 20051208
  Transmission Date: 20060501
  Serious: Yes (Hospitalization)
  Sender: FDA-Public Use
  Company Number: CH-SANOFI-SYNTHELABO-A01200508569

PATIENT
  Age: 82 Year
  Sex: Female

DRUGS (5)
  1. PLAVIX [Suspect]
     Indication: DRUG USE FOR UNKNOWN INDICATION
     Route: 048
     Dates: start: 20050921, end: 20050926
  2. ENATEC [Concomitant]
     Indication: DRUG USE FOR UNKNOWN INDICATION
     Route: 048
  3. SINTROM [Concomitant]
     Indication: DRUG USE FOR UNKNOWN INDICATION
     Dosage: AS NECESSARY UNK
     Route: 048
  4. NITRODERM [Concomitant]
     Indication: DRUG USE FOR UNKNOWN INDICATION
     Route: 062
  5. CORVATON [Concomitant]
     Indication: DRUG USE FOR UNKNOWN INDICATION
     Route: 048

REACTIONS (4)
  - GASTROINTESTINAL HAEMORRHAGE [None]
  - PANCYTOPENIA [None]
  - PLEURAL EFFUSION [None]
  - SUBCUTANEOUS HAEMATOMA [None]
